FAERS Safety Report 18571300 (Version 1)
Quarter: 2020Q4

REPORT INFORMATION
  Report Type: Spontaneous
  Country: US (occurrence: US)
  Receive Date: 20201202
  Receipt Date: 20201202
  Transmission Date: 20210114
  Serious: Yes (Other)
  Sender: FDA-Public Use
  Company Number: US-PURDUE-USA-2020-0179621

PATIENT
  Age: 62 Year
  Sex: Female
  Weight: 70.3 kg

DRUGS (6)
  1. PERCOCET                           /00446701/ [Suspect]
     Active Substance: ACETAMINOPHEN\OXYCODONE HYDROCHLORIDE\OXYCODONE TEREPHTHALATE
     Indication: BACK INJURY
  2. PERCOCET                           /00446701/ [Suspect]
     Active Substance: ACETAMINOPHEN\OXYCODONE HYDROCHLORIDE\OXYCODONE TEREPHTHALATE
     Indication: MUSCLE STRAIN
  3. PERCOCET                           /00446701/ [Suspect]
     Active Substance: ACETAMINOPHEN\OXYCODONE HYDROCHLORIDE\OXYCODONE TEREPHTHALATE
     Indication: NECK INJURY
     Dosage: UNK
     Route: 065
     Dates: start: 1989
  4. OXYCODONE/ ACETAMINOPHEN TABLETS [Suspect]
     Active Substance: ACETAMINOPHEN\OXYCODONE HYDROCHLORIDE
     Indication: NECK INJURY
     Dosage: UNK
     Route: 048
     Dates: start: 1989
  5. OXYCODONE/ ACETAMINOPHEN TABLETS [Suspect]
     Active Substance: ACETAMINOPHEN\OXYCODONE HYDROCHLORIDE
     Indication: BACK INJURY
  6. OXYCODONE/ ACETAMINOPHEN TABLETS [Suspect]
     Active Substance: ACETAMINOPHEN\OXYCODONE HYDROCHLORIDE
     Indication: MUSCLE STRAIN

REACTIONS (13)
  - Drug dependence [Unknown]
  - Herpes virus infection [Unknown]
  - Borderline personality disorder [Unknown]
  - Hepatitis C [Recovered/Resolved]
  - Papilloma viral infection [Unknown]
  - Hysterectomy [Unknown]
  - Overdose [Unknown]
  - Alcoholic [Unknown]
  - Depression [Unknown]
  - Anxiety [Unknown]
  - Weight decreased [Unknown]
  - Drug withdrawal syndrome [Unknown]
  - Renal impairment [Unknown]
